FAERS Safety Report 7800828-1 (Version None)
Quarter: 2011Q4

REPORT INFORMATION
  Report Type: 
  Country: None (occurrence: None)
  Receive Date: 20111006
  Receipt Date: 20110926
  Transmission Date: 20120403
  Serious: Yes (Hospitalization)
  Sender: FDA-Public Use
  Company Number: BR-MEDIMMUNE-MEDI-0013594

PATIENT
  Sex: Male
  Weight: 6.54 kg

DRUGS (4)
  1. SYNAGIS [Suspect]
     Dates: start: 20110501, end: 20110801
  2. PROTOVIT [Concomitant]
     Route: 048
     Dates: start: 20110121
  3. FERROUS SULFATE TAB [Concomitant]
     Route: 048
     Dates: start: 20110121
  4. SYNAGIS [Suspect]
     Indication: BRONCHOPULMONARY DYSPLASIA

REACTIONS (6)
  - PYREXIA [None]
  - INNER EAR INFLAMMATION [None]
  - COUGH [None]
  - FATIGUE [None]
  - WHEEZING [None]
  - RESPIRATORY DISTRESS [None]
